FAERS Safety Report 10998716 (Version 1)
Quarter: 2015Q2

REPORT INFORMATION
  Report Type: Report from Study
  Country: CA (occurrence: AD)
  Receive Date: 20150408
  Receipt Date: 20150408
  Transmission Date: 20150821
  Serious: Yes (Hospitalization)
  Sender: FDA-Public Use
  Company Number: CA-ABBVIE-15P-028-1369872-00

PATIENT
  Sex: Male
  Weight: 83.99 kg

DRUGS (1)
  1. LUPRON DEPOT [Suspect]
     Active Substance: LEUPROLIDE ACETATE
     Indication: PROSTATE CANCER
     Route: 030
     Dates: start: 20121010

REACTIONS (12)
  - Platelet disorder [Unknown]
  - Blood urea abnormal [Unknown]
  - Pyrexia [Unknown]
  - Neutrophil count abnormal [Unknown]
  - Blood creatinine abnormal [Unknown]
  - Urosepsis [Not Recovered/Not Resolved]
  - Lymphocyte count abnormal [Unknown]
  - Anion gap abnormal [Unknown]
  - Haematocrit abnormal [Unknown]
  - Blood electrolytes abnormal [Unknown]
  - Asthenia [Unknown]
  - Fall [Unknown]

NARRATIVE: CASE EVENT DATE: 20150327
